FAERS Safety Report 18330351 (Version 1)
Quarter: 2020Q3

REPORT INFORMATION
  Report Type: Spontaneous
  Country: US (occurrence: US)
  Receive Date: 20200930
  Receipt Date: 20200930
  Transmission Date: 20201103
  Serious: Yes (Death)
  Sender: FDA-Public Use
  Company Number: None

PATIENT
  Sex: Female

DRUGS (9)
  1. ASPIRIN 81 MG CHEWABLE TABLET [Concomitant]
  2. CALCIUM CARBONATE?VITAMIN D3 600 MG(1,500MG) ?500 UNIT CAP [Concomitant]
  3. MYCOPHENOLATE (CELLCEPT) 250 MG CAPSULE [Concomitant]
  4. MYCOPHENOLATE [Suspect]
     Active Substance: MYCOPHENOLIC ACID
     Indication: LIVER TRANSPLANT
     Route: 048
     Dates: start: 20180824, end: 20200521
  5. METFORMIN (GLUCOPHAGE) 500 MG TABLET [Concomitant]
  6. SIMVASTATIN (ZOCOR) 40 MG TABLET [Concomitant]
  7. LOSARTAN (COZAAR) 100 MG TABLET [Concomitant]
  8. OMEPRAZOLE (PRILOSEC) 20 MG CAPSULE [Concomitant]
  9. TACROLIMUS (PROGRAF) 0.5 MG CAPSULE [Concomitant]

REACTIONS (1)
  - Death [None]
